FAERS Safety Report 15680034 (Version 2)
Quarter: 2019Q2

REPORT INFORMATION
  Report Type: Spontaneous
  Country: JP (occurrence: JP)
  Receive Date: 20181203
  Receipt Date: 20190403
  Transmission Date: 20190711
  Serious: Yes (Other)
  Sender: FDA-Public Use
  Company Number: JP-SUN PHARMACEUTICAL INDUSTRIES LTD-2018R1-192426

PATIENT
  Age: 41 Year
  Sex: Female

DRUGS (11)
  1. TANDOSPIRONE [Concomitant]
     Active Substance: TANDOSPIRONE
     Indication: SLEEP DISORDER
     Dosage: 10 MILLIGRAM, TID
     Route: 048
     Dates: start: 20170220, end: 20180604
  2. ROZEREM [Concomitant]
     Active Substance: RAMELTEON
     Indication: INSOMNIA
     Dosage: 8 MILLIGRAM, QD
     Route: 048
     Dates: start: 20180528, end: 20181010
  3. TEGRETOL [Suspect]
     Active Substance: CARBAMAZEPINE
     Indication: MUSCLE SPASMS
     Dosage: 400 MILLIGRAM, DAILY
     Route: 048
     Dates: start: 20180529, end: 20180530
  4. LIORESAL [Concomitant]
     Active Substance: BACLOFEN
     Indication: MUSCLE SPASMS
     Dosage: 5 MILLIGRAM, QD
     Route: 048
     Dates: start: 20170417, end: 20170601
  5. RISPERIDONE. [Concomitant]
     Active Substance: RISPERIDONE
     Dosage: 1 MILLIGRAM, QD
     Route: 048
     Dates: start: 20180528, end: 20180528
  6. CEREDIST [Concomitant]
     Active Substance: TALTIRELIN
     Indication: SPINOCEREBELLAR DISORDER
     Dosage: 5 MILLIGRAM, BID
     Dates: start: 20170220
  7. LIORESAL [Concomitant]
     Active Substance: BACLOFEN
     Dosage: 5 MILLIGRAM, BID
     Route: 048
     Dates: start: 20170612, end: 20180606
  8. TEGRETOL [Suspect]
     Active Substance: CARBAMAZEPINE
     Dosage: 800 MILLIGRAM, DAILY
     Route: 048
     Dates: start: 20180531, end: 20180606
  9. LORAZEPAM. [Concomitant]
     Active Substance: LORAZEPAM
     Indication: DEPRESSION
     Dosage: 0.5 MILLIGRAM, BID
     Route: 048
     Dates: start: 20180510, end: 20180604
  10. ZOLPIDEM TARTRATE. [Concomitant]
     Active Substance: ZOLPIDEM TARTRATE
     Indication: INSOMNIA
     Dosage: 5 MILLIGRAM, QD
     Route: 048
     Dates: start: 20180528, end: 20180601
  11. BELSOMRA [Concomitant]
     Active Substance: SUVOREXANT
     Indication: INSOMNIA
     Dosage: 15 MILLIGRAM, QD
     Route: 048
     Dates: start: 20180528, end: 20180530

REACTIONS (5)
  - Myositis [Unknown]
  - Somnolence [Recovering/Resolving]
  - Incorrect route of product administration [Unknown]
  - Muscle spasms [Recovered/Resolved]
  - Inappropriate antidiuretic hormone secretion [Unknown]

NARRATIVE: CASE EVENT DATE: 20180604
